FAERS Safety Report 20646907 (Version 1)
Quarter: 2022Q1

REPORT INFORMATION
  Report Type: Spontaneous
  Country: CO (occurrence: CO)
  Receive Date: 20220329
  Receipt Date: 20220329
  Transmission Date: 20220424
  Serious: Yes (Other)
  Sender: FDA-Public Use
  Company Number: CO-PFIZER INC-202101425136

PATIENT
  Age: 64 Year
  Sex: Female

DRUGS (1)
  1. ENBREL [Suspect]
     Active Substance: ETANERCEPT
     Indication: Rheumatoid arthritis
     Dosage: 50 MILLIGRAM, QWK
     Route: 058
     Dates: end: 201912

REACTIONS (4)
  - Hyperkeratosis [Not Recovered/Not Resolved]
  - Purulence [Not Recovered/Not Resolved]
  - Skin exfoliation [Recovered/Resolved]
  - General symptom [Not Recovered/Not Resolved]

NARRATIVE: CASE EVENT DATE: 20191201
